FAERS Safety Report 10721960 (Version 7)
Quarter: 2015Q2

REPORT INFORMATION
  Report Type: Spontaneous
  Country: US (occurrence: US)
  Receive Date: 20150119
  Receipt Date: 20150618
  Transmission Date: 20150821
  Serious: Yes (Hospitalization, Other)
  Sender: FDA-Public Use
  Company Number: US-009507513-1201USA01081

PATIENT
  Sex: Female
  Weight: 54.42 kg

DRUGS (3)
  1. ALENDRONATE SODIUM. [Suspect]
     Active Substance: ALENDRONATE SODIUM
     Indication: BONE DENSITY DECREASED
     Dosage: 70 MG, QW
     Route: 048
     Dates: start: 20080223
  2. BONIVA [Suspect]
     Active Substance: IBANDRONATE SODIUM
     Indication: PRODUCT USED FOR UNKNOWN INDICATION
  3. FOSAMAX [Suspect]
     Active Substance: ALENDRONATE SODIUM
     Indication: BONE DENSITY DECREASED
     Dosage: 70 MG, UNK
     Route: 048
     Dates: start: 20020530, end: 20080116

REACTIONS (22)
  - Intramedullary rod insertion [Unknown]
  - Infected seroma [Recovered/Resolved]
  - Depression [Unknown]
  - Steroid therapy [Unknown]
  - Abdominal hernia [Unknown]
  - Immune thrombocytopenic purpura [Unknown]
  - Hypertension [Unknown]
  - Vascular calcification [Unknown]
  - Femur fracture [Unknown]
  - Fall [Unknown]
  - Osteoporosis [Unknown]
  - Cellulitis [Unknown]
  - Hepatitis C [Unknown]
  - Thrombocytopenia [Unknown]
  - Abscess limb [Unknown]
  - Skin abrasion [Unknown]
  - Splenectomy [Unknown]
  - Fall [Unknown]
  - Type 2 diabetes mellitus [Unknown]
  - Intramedullary rod insertion [Unknown]
  - Intervertebral disc protrusion [Unknown]
  - Osteoarthritis [Unknown]

NARRATIVE: CASE EVENT DATE: 20110424
